FAERS Safety Report 19462841 (Version 1)
Quarter: 2021Q2

REPORT INFORMATION
  Report Type: Spontaneous
  Country: CA (occurrence: CA)
  Receive Date: 20210627
  Receipt Date: 20210627
  Transmission Date: 20210717
  Serious: Yes (Other)
  Sender: FDA-Public Use
  Company Number: CA-SA-2021SA200836

PATIENT
  Age: 79 Year
  Sex: Male

DRUGS (7)
  1. TRIAMCINOLONE ACETONIDE. [Suspect]
     Active Substance: TRIAMCINOLONE ACETONIDE
     Indication: AGE-RELATED MACULAR DEGENERATION
     Route: 065
  2. TRIAMCINOLONE ACETONIDE. [Suspect]
     Active Substance: TRIAMCINOLONE ACETONIDE
     Dosage: 20 UNK
  3. AFLIBERCEPT [Suspect]
     Active Substance: AFLIBERCEPT
     Indication: AGE-RELATED MACULAR DEGENERATION
     Route: 065
  4. TRIAMCINOLONE ACETONIDE. [Suspect]
     Active Substance: TRIAMCINOLONE ACETONIDE
     Route: 065
  5. TRIAMCINOLONE ACETONIDE. [Suspect]
     Active Substance: TRIAMCINOLONE ACETONIDE
     Route: 065
  6. BROLUCIZUMAB. [Suspect]
     Active Substance: BROLUCIZUMAB
     Indication: AGE-RELATED MACULAR DEGENERATION
     Dosage: 1 DF, QM
     Route: 031
  7. BROLUCIZUMAB. [Suspect]
     Active Substance: BROLUCIZUMAB
     Indication: AGE-RELATED MACULAR DEGENERATION
     Dosage: 1 DF, QM
     Route: 031

REACTIONS (2)
  - Endophthalmitis [Unknown]
  - Corneal oedema [Not Recovered/Not Resolved]
